FAERS Safety Report 26059784 (Version 1)
Quarter: 2025Q4

REPORT INFORMATION
  Report Type: Report from Study
  Country: US (occurrence: US)
  Receive Date: 20251118
  Receipt Date: 20251118
  Transmission Date: 20260118
  Serious: Yes (Death)
  Sender: TEVA
  Company Number: US-TEVA-VS-3393086

PATIENT
  Age: 60 Year
  Sex: Male

DRUGS (10)
  1. FLUDARABINE [Suspect]
     Active Substance: FLUDARABINE PHOSPHATE
     Indication: Blastic plasmacytoid dendritic cell neoplasia
     Dosage: PART OF FLAG-IDA REGIMEN
     Route: 065
  2. CYCLOPHOSPHAMIDE [Suspect]
     Active Substance: CYCLOPHOSPHAMIDE
     Indication: Metastatic neoplasm
     Dosage: PART OF COEP REGIMEN
     Route: 065
  3. PREDNISONE [Suspect]
     Active Substance: PREDNISONE
     Indication: Metastatic neoplasm
     Dosage: PART OF COEP REGIMEN
     Route: 065
  4. IDARUBICIN [Suspect]
     Active Substance: IDARUBICIN
     Indication: Blastic plasmacytoid dendritic cell neoplasia
     Dosage: PART OF FLAG-IDA REGIMEN
     Route: 065
  5. ETOPOSIDE [Suspect]
     Active Substance: ETOPOSIDE
     Indication: Metastatic neoplasm
     Dosage: PART OF COEP REGIMEN
     Route: 065
  6. VENETOCLAX [Suspect]
     Active Substance: VENETOCLAX
     Indication: Blastic plasmacytoid dendritic cell neoplasia
     Route: 065
  7. CYTARABINE [Suspect]
     Active Substance: CYTARABINE
     Indication: Metastatic neoplasm
     Dosage: PART OF FLAG-IDA REGIMEN
     Route: 065
  8. TAGRAXOFUSP [Suspect]
     Active Substance: TAGRAXOFUSP
     Indication: Blastic plasmacytoid dendritic cell neoplasia
     Route: 065
  9. DECITABINE [Suspect]
     Active Substance: DECITABINE
     Indication: Blastic plasmacytoid dendritic cell neoplasia
     Route: 065
  10. VINCRISTINE [Suspect]
     Active Substance: VINCRISTINE
     Indication: Metastatic neoplasm
     Dosage: PART OF COEP REGIMEN
     Route: 065

REACTIONS (1)
  - Drug ineffective [Fatal]
